FAERS Safety Report 6700792-2 (Version None)
Quarter: 2010Q2

REPORT INFORMATION
  Report Type: 
  Country: None (occurrence: None)
  Receive Date: 20100428
  Receipt Date: 20100420
  Transmission Date: 20101027
  Serious: Yes (Hospitalization)
  Sender: FDA-Public Use
  Company Number: MX-ELI_LILLY_AND_COMPANY-MX201004006308

PATIENT
  Age: 70 Year
  Sex: Female
  Weight: 71.5 kg

DRUGS (8)
  1. HUMULIN N [Suspect]
     Indication: DIABETES MELLITUS
     Dosage: 25 IU, EACH MORNING
     Route: 058
     Dates: start: 20081101
  2. HUMULIN N [Suspect]
     Dosage: 15 IU, EACH EVENING
     Route: 058
     Dates: start: 20081101
  3. METOPROLOL TARTRATE [Concomitant]
     Dosage: UNK, 2/D
     Route: 065
  4. ENALAPRIL MALEATE [Concomitant]
     Dosage: UNK, 2/D
     Route: 065
  5. ASPIRIN [Concomitant]
  6. ATORVASTATIN [Concomitant]
     Dosage: 20 MG, DAILY (1/D)
     Route: 065
  7. OMEPRAZOLE [Concomitant]
     Dosage: UNK, DAILY (1/D)
     Route: 065
  8. FUROSEMIDE [Concomitant]
     Dosage: UNK, 2/D

REACTIONS (4)
  - BLOOD GLUCOSE FLUCTUATION [None]
  - FATIGUE [None]
  - INFARCTION [None]
  - PAIN IN EXTREMITY [None]
